FAERS Safety Report 9342441 (Version 1)
Quarter: 2013Q2

REPORT INFORMATION
  Report Type: Other
  Country: GB (occurrence: GB)
  Receive Date: 20130611
  Receipt Date: 20130611
  Transmission Date: 20140414
  Serious: Yes (Life-Threatening, Hospitalization, Other)
  Sender: FDA-Public Use
  Company Number: GB-TARO PHARMACEUTICALS U.S.A., INC-2013SUN00678

PATIENT
  Age: 63 Year
  Sex: Female
  Weight: 95 kg

DRUGS (14)
  1. WARFARIN [Suspect]
     Indication: ATRIAL FIBRILLATION
     Route: 048
  2. BISOPROLOL [Concomitant]
  3. CLOPIDOGREL [Concomitant]
  4. COLECALCIFEROL [Concomitant]
  5. DIGOXIN [Concomitant]
  6. FERROUS FUMARATE [Concomitant]
  7. FUROSEMIDE [Concomitant]
  8. GABAPENTIN [Concomitant]
  9. GLYCERYL TRINITRATE [Concomitant]
  10. LEFLUNOMIDE [Concomitant]
  11. PARACETAMOL [Concomitant]
  12. RAMIPRIL [Concomitant]
  13. SIMVASTATIN [Concomitant]
  14. SULFASALAZINE [Concomitant]

REACTIONS (3)
  - Fall [Recovering/Resolving]
  - International normalised ratio increased [Recovering/Resolving]
  - Subdural haematoma [Recovering/Resolving]
